FAERS Safety Report 24095712 (Version 1)
Quarter: 2024Q3

REPORT INFORMATION
  Report Type: Report from Study
  Country: TR (occurrence: TR)
  Receive Date: 20240716
  Receipt Date: 20240716
  Transmission Date: 20241017
  Serious: Yes (Other)
  Sender: ROCHE
  Company Number: TR-ROCHE-10000015708

PATIENT

DRUGS (3)
  1. BEVACIZUMAB [Suspect]
     Active Substance: BEVACIZUMAB
     Indication: Ovarian cancer metastatic
     Route: 065
  2. PACLITAXEL [Suspect]
     Active Substance: PACLITAXEL
     Indication: Ovarian cancer metastatic
     Route: 065
  3. GEMCITABINE [Suspect]
     Active Substance: GEMCITABINE
     Indication: Ovarian cancer metastatic
     Route: 065

REACTIONS (9)
  - Hypertension [Unknown]
  - Proteinuria [Unknown]
  - Gastrointestinal perforation [Unknown]
  - Fistula [Unknown]
  - Embolism [Unknown]
  - Febrile neutropenia [Unknown]
  - Posterior reversible encephalopathy syndrome [Unknown]
  - Cardiac failure congestive [Unknown]
  - Haemorrhage [Unknown]
